FAERS Safety Report 7528027-1 (Version None)
Quarter: 2011Q2

REPORT INFORMATION
  Report Type: 
  Country: None (occurrence: None)
  Receive Date: 20110517
  Receipt Date: 20100512
  Transmission Date: 20111010
  Serious: Yes (Hospitalization)
  Sender: FDA-Public Use
  Company Number: ALL1-2010-02756

PATIENT
  Age: 72 Year
  Sex: Male

DRUGS (1)
  1. FOSRENOL [Suspect]
     Indication: HYPERPHOSPHATAEMIA
     Dosage: 500 MG , 2X/DAY:BID, WITH MEALS, ORAL
     Route: 048
     Dates: start: 20100401

REACTIONS (2)
  - HYPOTENSION [None]
  - CONDITION AGGRAVATED [None]
